FAERS Safety Report 15463269 (Version 1)
Quarter: 2018Q4

REPORT INFORMATION
  Report Type: Spontaneous
  Country: ES (occurrence: ES)
  Receive Date: 20181004
  Receipt Date: 20181004
  Transmission Date: 20190204
  Serious: Yes (Hospitalization, Other)
  Sender: FDA-Public Use
  Company Number: ES-AUROBINDO-AUR-APL-2018-048265

PATIENT
  Age: 49 Year
  Sex: Female

DRUGS (4)
  1. FILGRASTI M [Concomitant]
     Indication: RECTAL CANCER
     Dosage: UNK (48 H A DEMANDA POR SU ONC?LOGO)
     Route: 065
     Dates: start: 20180302, end: 20180303
  2. CAPECITABINE. [Suspect]
     Active Substance: CAPECITABINE
     Indication: RECTAL CANCER
     Dosage: 1650 MILLIGRAM, TWO TIMES A DAY
     Route: 048
     Dates: start: 20180301, end: 20180309
  3. LORAZEPAM. [Concomitant]
     Active Substance: LORAZEPAM
     Indication: ANXIETY
     Dosage: 1 MILLIGRAM AS NECESSARY
     Route: 065
  4. OXALIPLATINO [Concomitant]
     Active Substance: OXALIPLATIN
     Indication: RECTAL CANCER
     Dosage: UNK
     Route: 065
     Dates: start: 20180301, end: 20180301

REACTIONS (1)
  - Acute coronary syndrome [Recovered/Resolved]

NARRATIVE: CASE EVENT DATE: 20180309
